FAERS Safety Report 8484540-4 (Version None)
Quarter: 2012Q3

REPORT INFORMATION
  Report Type: 
  Country: None (occurrence: None)
  Receive Date: 20120703
  Receipt Date: 20120621
  Transmission Date: 20120928
  Serious: Yes (Hospitalization, Other)
  Sender: FDA-Public Use
  Company Number: US-MYLANLABS-2010AC000092

PATIENT
  Age: 71 Year
  Sex: Female
  Weight: 58.97 kg

DRUGS (29)
  1. MEDROL [Concomitant]
  2. MINITRAN [Concomitant]
  3. NITROGLYCERIN [Concomitant]
  4. LEVAQUIN [Concomitant]
  5. FLAGYL [Concomitant]
  6. ZITHROMAX [Concomitant]
  7. HYDROCORT /00028604/ [Concomitant]
  8. AZITHROMYCIN [Concomitant]
  9. CODICLEAR [Concomitant]
  10. PLAVIX [Concomitant]
  11. PENICILLIN [Concomitant]
  12. METOPROLOL [Concomitant]
  13. PHENERGAN HCL [Concomitant]
  14. DIOVAN [Concomitant]
  15. POTASSIUM CHLORIDE [Concomitant]
     Indication: CARDIAC DISORDER
  16. COREG [Concomitant]
     Indication: CARDIAC DISORDER
  17. SIMVASTATIN [Concomitant]
  18. ALPRAZOLAM [Concomitant]
  19. METFORMIN HCL [Concomitant]
  20. PREDNISONE [Concomitant]
  21. CEFUROXIME [Concomitant]
  22. LISINOPRIL [Concomitant]
     Indication: CARDIAC DISORDER
  23. DIGOXIN [Suspect]
     Indication: HEART RATE DECREASED
     Route: 048
     Dates: start: 20040424, end: 20080225
  24. FUROSEMIDE [Concomitant]
     Indication: FLUID RETENTION
  25. AUGMENTIN '125' [Concomitant]
  26. GABAPENTIN [Concomitant]
  27. TRAMADOL HCL [Concomitant]
  28. BENZONATATE [Concomitant]
  29. MUCINEX [Concomitant]

REACTIONS (21)
  - CATHETERISATION CARDIAC [None]
  - ECONOMIC PROBLEM [None]
  - INSOMNIA [None]
  - INJURY [None]
  - STENT PLACEMENT [None]
  - CHEST PAIN [None]
  - DYSPNOEA [None]
  - EMOTIONAL DISTRESS [None]
  - NERVOUSNESS [None]
  - CARDIAC DISORDER [None]
  - FATIGUE [None]
  - ILL-DEFINED DISORDER [None]
  - MYOCARDIAL INFARCTION [None]
  - NAUSEA [None]
  - DISTURBANCE IN ATTENTION [None]
  - VOMITING [None]
  - DIZZINESS [None]
  - HYPERTENSION [None]
  - ANHEDONIA [None]
  - ASTHENIA [None]
  - ANXIETY [None]
